FAERS Safety Report 26186284 (Version 1)
Quarter: 2025Q4

REPORT INFORMATION
  Report Type: Spontaneous
  Country: US (occurrence: None)
  Receive Date: 20251219
  Receipt Date: 20251219
  Transmission Date: 20260117
  Serious: Yes (Hospitalization)
  Sender: FDA-CTU
  Company Number: None

PATIENT
  Age: 51 Year
  Sex: Female

DRUGS (1)
  1. TEZSPIRE [Suspect]
     Active Substance: TEZEPELUMAB-EKKO
     Indication: Asthma
     Dosage: FREQUENCY : MONTHLY;

REACTIONS (10)
  - Pain [None]
  - Rash [None]
  - Dyspnoea [None]
  - Sleep disorder [None]
  - Musculoskeletal stiffness [None]
  - Swelling [None]
  - Cardiac failure [None]
  - Acute kidney injury [None]
  - Fungal infection [None]
  - Skin disorder [None]
